FAERS Safety Report 8617925 (Version 6)
Quarter: 2012Q4

REPORT INFORMATION
  Report Type: 
  Country: US (occurrence: US)
  Receive Date: 20120615
  Receipt Date: 20120910
  Transmission Date: 20130627
  Serious: Yes (Hospitalization)
  Sender: FDA-Public Use
  Company Number: PHHO2012US008862

PATIENT
  Age: 80 Year
  Sex: Male
  Weight: 73 kg

DRUGS (9)
  1. AMIODARON HYDROCHLORIDE [Suspect]
     Indication: ATRIAL FIBRILLATION
     Dosage: 400 mg, QD
     Route: 048
     Dates: start: 20120120, end: 20120607
  2. ACZ885 [Suspect]
     Indication: CARDIOVASCULAR EVENT PROPHYLAXIS
     Dosage: UNK
     Route: 048
     Dates: start: 20110708, end: 20120423
  3. XARELTO [Suspect]
     Indication: ATRIAL FIBRILLATION
     Dosage: 20 mg, QD
     Route: 048
     Dates: start: 20111230, end: 20120607
  4. LIPITOR [Concomitant]
     Indication: HYPERLIPIDAEMIA
     Dosage: 40 mg, QD
     Route: 048
     Dates: start: 20111220, end: 20120607
  5. LISINOPRIL [Concomitant]
     Indication: HYPERTENSION
     Dosage: 10 mg, QD
     Route: 048
     Dates: start: 2004, end: 20120607
  6. CARVEDILOL [Concomitant]
     Indication: ISCHAEMIC CARDIOMYOPATHY
     Dosage: 12.5 mg, BID
     Route: 048
     Dates: start: 20090205, end: 20120607
  7. ASPIRIN [Concomitant]
     Indication: CORONARY ARTERY DISEASE
     Dosage: 81 mg, QD2SDO
     Route: 048
     Dates: start: 1999, end: 20120607
  8. LASIX [Concomitant]
     Indication: ISCHAEMIC CARDIOMYOPATHY
     Dosage: 40 mg, QD
     Route: 048
     Dates: start: 20120224, end: 20120607
  9. POTASSIUM CHLORIDE [Concomitant]
     Indication: SUPPLEMENTATION THERAPY
     Dosage: 99 mg, QD
     Route: 048
     Dates: start: 20120226, end: 20120607

REACTIONS (6)
  - Pulmonary fibrosis [Not Recovered/Not Resolved]
  - Respiratory failure [None]
  - Interstitial lung disease [None]
  - Hypokalaemia [None]
  - Anaemia [None]
  - Coagulopathy [None]
